FAERS Safety Report 21163538 (Version 1)
Quarter: 2022Q3

REPORT INFORMATION
  Report Type: Spontaneous
  Country: None (occurrence: CA)
  Receive Date: 20220802
  Receipt Date: 20220802
  Transmission Date: 20221026
  Serious: Yes (Death)
  Sender: FDA-Public Use
  Company Number: CA-B.Braun Medical Inc.-2131469

PATIENT
  Age: 70 Year
  Sex: Male

DRUGS (4)
  1. DEXTROSE [Suspect]
     Active Substance: DEXTROSE
  2. TRAVASOL [Suspect]
     Active Substance: ALANINE\ARGININE\GLYCINE\HISTIDINE\ISOLEUCINE\LEUCINE\LYSINE HYDROCHLORIDE\METHIONINE\PHENYLALANINE\
  3. NIACINAMIDE\PYRIDOXINE HYDROCHLORIDE\TYROSINE [Suspect]
     Active Substance: NIACINAMIDE\PYRIDOXINE HYDROCHLORIDE\TYROSINE
  4. SODIUM ACETATE [Suspect]
     Active Substance: SODIUM ACETATE

REACTIONS (5)
  - Off label use [Fatal]
  - Blood chloride abnormal [Fatal]
  - Gastrointestinal haemorrhage [Fatal]
  - Hyperglycaemia [Fatal]
  - Oedema [Fatal]
